FAERS Safety Report 14297248 (Version 1)
Quarter: 2017Q4

REPORT INFORMATION
  Report Type: Spontaneous
  Country: US (occurrence: US)
  Receive Date: 20171218
  Receipt Date: 20171218
  Transmission Date: 20180321
  Serious: No
  Sender: FDA-Public Use
  Company Number: US-SEPTODONT-201704153

PATIENT
  Age: 67 Year
  Sex: Male

DRUGS (1)
  1. MEPIVACAINE [Suspect]
     Active Substance: MEPIVACAINE\MEPIVACAINE HYDROCHLORIDE
     Indication: LOCAL ANAESTHESIA
     Dosage: ADMINISTERED OVER A PERIOD OF MORE THAN 60 MINUTES VIA INFERIOR ALVEOLAR NERVE BLOCK
     Route: 004

REACTIONS (1)
  - Micturition urgency [Unknown]
